FAERS Safety Report 9363725 (Version 3)
Quarter: 2014Q2

REPORT INFORMATION
  Report Type: Spontaneous
  Country: IT (occurrence: None)
  Receive Date: 20130618
  Receipt Date: 20140402
  Transmission Date: 20141212
  Serious: Yes (Hospitalization)
  Sender: FDA-Public Use
  Company Number: VAL_02567_2013

PATIENT
  Age: 74 Year
  Sex: Female

DRUGS (9)
  1. ROCALTROL [Suspect]
     Indication: CALCIUM DEFICIENCY
     Route: 048
     Dates: start: 20130514, end: 20130517
  2. CALCIUM [Suspect]
     Indication: CALCIUM DEFICIENCY
     Route: 048
     Dates: start: 20130514, end: 201305
  3. ATENOLOL [Concomitant]
  4. NOVONORM [Concomitant]
  5. NORVASC [Concomitant]
  6. TRIATEC /00885601/ [Concomitant]
  7. PANTORC [Concomitant]
  8. EUTIROX [Concomitant]
  9. VITAMIN D /00107901/ [Suspect]
     Indication: PRODUCT USED FOR UNKNOWN INDICATION
     Dosage: (DF)
     Dates: start: 201305

REACTIONS (1)
  - Hypercalcaemia [None]
